FAERS Safety Report 19073525 (Version 1)
Quarter: 2021Q1

REPORT INFORMATION
  Report Type: Spontaneous
  Country: US (occurrence: US)
  Receive Date: 20210330
  Receipt Date: 20210330
  Transmission Date: 20210420
  Serious: Yes (Hospitalization)
  Sender: FDA-Public Use
  Company Number: None

PATIENT
  Age: 88 Year
  Sex: Female
  Weight: 60.4 kg

DRUGS (1)
  1. BAMLANIVIMAB 700MG/20ML, 50ML OF SALINE [Suspect]
     Active Substance: BAMLANIVIMAB
     Indication: COVID-19
     Dosage: ?          OTHER STRENGTH:700MG/20ML, 50ML;OTHER DOSE:70ML INFUSED/16 MI;OTHER ROUTE:INFUSION?
     Dates: start: 20210322, end: 20210322

REACTIONS (9)
  - Blood urea abnormal [None]
  - Blood sodium decreased [None]
  - Troponin increased [None]
  - Blood creatinine abnormal [None]
  - Syncope [None]
  - Atrial fibrillation [None]
  - Cardiac failure [None]
  - Blood chloride decreased [None]
  - Brain natriuretic peptide increased [None]

NARRATIVE: CASE EVENT DATE: 20210322
